FAERS Safety Report 9234732 (Version 2)
Quarter: 2013Q2

REPORT INFORMATION
  Report Type: Report from Study
  Country: US (occurrence: US)
  Receive Date: 20130416
  Receipt Date: 20130529
  Transmission Date: 20140414
  Serious: Yes (Life-Threatening, Hospitalization)
  Sender: FDA-Public Use
  Company Number: US-CELGENEUS-163-21880-12113254

PATIENT
  Age: 74 Year
  Sex: Male
  Weight: 80.18 kg

DRUGS (32)
  1. REVLIMID [Suspect]
     Indication: PLASMA CELL MYELOMA
     Dosage: 25 MILLIGRAM
     Route: 048
     Dates: start: 20110823, end: 20120326
  2. REVLIMID [Suspect]
     Dosage: 15 MILLIGRAM
     Route: 048
     Dates: start: 20120410, end: 20121105
  3. CARFILZOMIB [Suspect]
     Indication: PLASMA CELL MYELOMA
     Dosage: 40 MILLIGRAM
     Route: 065
     Dates: start: 20110823, end: 20110824
  4. CARFILZOMIB [Suspect]
     Dosage: 54 MILLIGRAM
     Route: 065
     Dates: start: 20110830, end: 20110907
  5. CARFILZOMIB [Suspect]
     Dosage: 54 MILLIGRAM
     Route: 065
     Dates: start: 20110920, end: 20121031
  6. DEXAMETHASONE [Suspect]
     Indication: PLASMA CELL MYELOMA
     Dosage: 40 MILLIGRAM
     Route: 065
     Dates: start: 20110823, end: 20110830
  7. DEXAMETHASONE [Suspect]
     Dosage: 20 MILLIGRAM
     Route: 065
     Dates: start: 20110830, end: 20110913
  8. DEXAMETHASONE [Suspect]
     Dosage: 20 MILLIGRAM
     Route: 065
     Dates: start: 20110920, end: 20121106
  9. DEXAMETHASONE [Suspect]
     Dosage: 40 MILLIGRAM
     Route: 048
     Dates: start: 20121118, end: 20121121
  10. THALOMID [Suspect]
     Indication: CHEMOTHERAPY
     Dosage: 200 MILLIGRAM
     Route: 048
     Dates: start: 20121118, end: 20121121
  11. THALOMID [Suspect]
     Dosage: 100 MILLIGRAM
     Route: 048
     Dates: start: 20121121, end: 20121121
  12. THALOMID [Suspect]
     Route: 048
     Dates: start: 20121122, end: 20121122
  13. ACYCLOVIR [Concomitant]
     Indication: ANTIVIRAL PROPHYLAXIS
     Dosage: 800 MILLIGRAM
     Route: 048
     Dates: start: 200807
  14. ACYCLOVIR [Concomitant]
     Indication: PROPHYLAXIS OF NAUSEA AND VOMITING
     Dosage: 800 MILLIGRAM
     Route: 048
     Dates: start: 20121115, end: 20121122
  15. ASPIRIN [Concomitant]
     Indication: ANTICOAGULANT THERAPY
     Dosage: 81 MILLIGRAM
     Route: 048
  16. ASPIRIN [Concomitant]
     Indication: ANTIPLATELET THERAPY
  17. GABAPENTIN [Concomitant]
     Indication: NEUROPATHY PERIPHERAL
     Dosage: 600 MILLIGRAM
     Route: 048
     Dates: start: 20090527
  18. K-PHOS NEUTRAL [Concomitant]
     Indication: HYPOPHOSPHATAEMIA
     Dosage: 750 MILLIGRAM
     Route: 048
     Dates: start: 20110824
  19. PRILOSEC [Concomitant]
     Indication: PRODUCT USED FOR UNKNOWN INDICATION
     Dosage: 20 MILLIGRAM
     Route: 048
     Dates: start: 20110822
  20. SYNTHROID [Concomitant]
     Indication: HYPOTHYROIDISM
     Dosage: 50 MICROGRAM
     Route: 048
     Dates: start: 1999
  21. NEUPOGEN [Concomitant]
     Indication: WHITE BLOOD CELL COUNT
     Route: 048
  22. NORMAL SALINE [Concomitant]
     Indication: DEHYDRATION
     Route: 041
     Dates: start: 20110920, end: 20121031
  23. BORTEZOMIB [Concomitant]
     Indication: CHEMOTHERAPY
     Route: 058
     Dates: start: 20121118, end: 20121118
  24. BORTEZOMIB [Concomitant]
     Dosage: 2.6 MILLIGRAM
     Route: 058
     Dates: start: 20121121, end: 20121121
  25. CEFTRIAXONE [Concomitant]
     Indication: URINARY TRACT INFECTION
     Route: 058
     Dates: start: 20121115, end: 20121115
  26. CISPLATIN [Concomitant]
     Indication: CHEMOTHERAPY
     Route: 041
     Dates: start: 20121118, end: 20121121
  27. DOXORUBICIN [Concomitant]
     Indication: CHEMOTHERAPY
     Route: 041
     Dates: start: 20121118, end: 20121121
  28. PENTAMIDINE [Concomitant]
     Indication: ANTIFUNGAL PROPHYLAXIS
     Dosage: 1800 MILLIGRAM
     Route: 048
     Dates: start: 20080715
  29. ZOFRAN [Concomitant]
     Indication: PROPHYLAXIS OF NAUSEA AND VOMITING
     Dosage: 16 MILLIGRAM
     Route: 048
     Dates: start: 20121118, end: 20121121
  30. ZOMETA [Concomitant]
     Indication: ROUTINE HEALTH MAINTENANCE
     Route: 058
     Dates: start: 20110920
  31. ACETAMINOPHEN [Concomitant]
     Indication: TRANSFUSION
     Route: 048
     Dates: start: 20121122
  32. BENADRYL [Concomitant]
     Indication: TRANSFUSION
     Route: 048
     Dates: start: 20121122

REACTIONS (1)
  - Plasma cell myeloma [Recovered/Resolved]
